FAERS Safety Report 12990522 (Version 1)
Quarter: 2016Q4

REPORT INFORMATION
  Report Type: Spontaneous
  Country: US (occurrence: US)
  Receive Date: 20161130
  Receipt Date: 20161130
  Transmission Date: 20170207
  Serious: Yes (Other)
  Sender: FDA-Public Use
  Company Number: None

PATIENT
  Age: 27 Year
  Weight: 58.05 kg

DRUGS (1)
  1. ESTARYLLA [Suspect]
     Active Substance: ETHINYL ESTRADIOL\NORGESTIMATE
     Indication: CONTRACEPTION
     Route: 048
     Dates: start: 20160401, end: 20160402

REACTIONS (3)
  - Haemorrhage [None]
  - Stress [None]
  - Menorrhagia [None]

NARRATIVE: CASE EVENT DATE: 20161107
